FAERS Safety Report 6064588 (Version 32)
Quarter: 2013Q2

REPORT INFORMATION
  Report Type: Spontaneous
  Country: US (occurrence: US)
  Receive Date: 20060614
  Receipt Date: 20130617
  Transmission Date: 20140414
  Serious: Yes (Other)
  Sender: FDA-Public Use
  Company Number: PHEH2006US07278

PATIENT
  Sex: Female
  Weight: 63.49 kg

DRUGS (19)
  1. AREDIA [Suspect]
     Indication: BREAST CANCER
     Dosage: 90 MG, QMO
     Route: 042
     Dates: start: 199810, end: 20020315
  2. AREDIA [Suspect]
  3. ZOMETA [Suspect]
     Indication: BREAST CANCER
     Dosage: 4 MG, QMO
     Route: 042
     Dates: start: 20020417, end: 20050325
  4. ZOMETA [Suspect]
     Dates: start: 20050325, end: 20050425
  5. TAMOXIFEN [Concomitant]
     Dosage: 10 MG, BID
     Route: 048
  6. FEMARA [Concomitant]
     Indication: BREAST CANCER
     Dosage: 2.5 MG, QD
     Route: 048
  7. FOLIC ACID [Concomitant]
  8. QUININE [Concomitant]
  9. ALLEGRA [Concomitant]
  10. ZOCOR ^MERCK^ [Concomitant]
  11. CHLORHEXIDINE [Concomitant]
  12. ANAESTHETICS, LOCAL [Concomitant]
  13. CITALOPRAM [Concomitant]
  14. CALCIUM [Concomitant]
  15. VITAMINS [Concomitant]
  16. MECLOZINE [Concomitant]
     Dates: start: 20110908
  17. OMEPRAZOLE [Concomitant]
     Dates: start: 20110908
  18. OMEPRAZOLE [Concomitant]
  19. DIFLUCAN [Concomitant]
     Dosage: 150 MG, QID
     Route: 048

REACTIONS (131)
  - Diverticulum intestinal [Unknown]
  - Sciatica [Unknown]
  - Amnesia [Unknown]
  - Chronic obstructive pulmonary disease [Unknown]
  - Bronchitis [Unknown]
  - Pneumonia [Unknown]
  - Malaise [Unknown]
  - Fatigue [Unknown]
  - Cerebral arteriosclerosis [Unknown]
  - Syncope [Unknown]
  - Headache [Unknown]
  - Cerebral ischaemia [Unknown]
  - Circulatory collapse [Unknown]
  - Hypercholesterolaemia [Unknown]
  - Hypertension [Unknown]
  - Hyponatraemia [Unknown]
  - Dizziness [Unknown]
  - Gastrooesophageal reflux disease [Unknown]
  - Vertigo [Unknown]
  - Neuropathy peripheral [Unknown]
  - Hypotension [Unknown]
  - Weight decreased [Unknown]
  - Edentulous [Unknown]
  - Breast calcifications [Unknown]
  - Large intestine polyp [Unknown]
  - Erythema [Unknown]
  - Aortic calcification [Unknown]
  - Aortic arteriosclerosis [Unknown]
  - Haematochezia [Unknown]
  - Actinic keratosis [Unknown]
  - Cognitive disorder [Unknown]
  - Dementia [Unknown]
  - Gait disturbance [Unknown]
  - Dementia Alzheimer^s type [Unknown]
  - Atrophy [Unknown]
  - Nervous system disorder [Unknown]
  - Encephalopathy [Unknown]
  - Vitamin D deficiency [Unknown]
  - Supraventricular tachycardia [Unknown]
  - Dyspnoea [Unknown]
  - Asthma [Unknown]
  - Atelectasis [Unknown]
  - Phlebitis deep [Unknown]
  - Benign gastrointestinal neoplasm [Unknown]
  - Thrombophlebitis [Unknown]
  - Stress urinary incontinence [Unknown]
  - Inner ear disorder [Unknown]
  - Faeces discoloured [Unknown]
  - Decreased appetite [Unknown]
  - Muscular weakness [Unknown]
  - Seborrhoeic keratosis [Unknown]
  - Actinic elastosis [Unknown]
  - Eczema nummular [Unknown]
  - Macule [Unknown]
  - Loss of consciousness [Unknown]
  - Metastatic lymphoma [Unknown]
  - Thyroid neoplasm [Unknown]
  - Lymphadenopathy [Unknown]
  - Respiratory disorder [Unknown]
  - Goitre [Unknown]
  - Sinus disorder [Unknown]
  - Loose tooth [Unknown]
  - Traumatic occlusion [Unknown]
  - Gingival bleeding [Unknown]
  - Tongue discolouration [Unknown]
  - Tongue disorder [Unknown]
  - Dental caries [Unknown]
  - Muscle spasms [Unknown]
  - Motion sickness [Unknown]
  - Orthostatic hypotension [Unknown]
  - Bruxism [Unknown]
  - Gingival pain [Unknown]
  - Chest pain [Unknown]
  - Anaemia [Unknown]
  - Pulmonary mass [Unknown]
  - Venous occlusion [Unknown]
  - Superior vena cava syndrome [Unknown]
  - Intervertebral disc degeneration [Unknown]
  - Intervertebral disc protrusion [Unknown]
  - Haematuria [Unknown]
  - Upper respiratory tract infection [Unknown]
  - Nasopharyngitis [Unknown]
  - Polydipsia [Unknown]
  - Hypovolaemia [Unknown]
  - Lethargy [Unknown]
  - Bursitis [Unknown]
  - Synovitis [Unknown]
  - Confusional state [Unknown]
  - Urinary tract infection [Unknown]
  - Osteoarthritis [Unknown]
  - Adrenal adenoma [Unknown]
  - Pyelonephritis [Unknown]
  - Osteonecrosis of jaw [Unknown]
  - Bone disorder [Unknown]
  - Impaired healing [Unknown]
  - Anhedonia [Unknown]
  - Injury [Unknown]
  - Jaw disorder [Unknown]
  - General physical health deterioration [Unknown]
  - Pain [Unknown]
  - Anxiety [Unknown]
  - Decreased interest [Unknown]
  - Infection [Unknown]
  - Escherichia infection [Unknown]
  - Upper limb fracture [Unknown]
  - Spinal osteoarthritis [Unknown]
  - Spondylolisthesis [Unknown]
  - Back pain [Unknown]
  - Lumbar spinal stenosis [Unknown]
  - Thyroid adenoma [Unknown]
  - Hyperlipidaemia [Unknown]
  - Blood creatinine increased [Unknown]
  - Tooth impacted [Unknown]
  - Osteitis [Unknown]
  - Skin exfoliation [Unknown]
  - Mastication disorder [Unknown]
  - Gingival disorder [Unknown]
  - Depression [Unknown]
  - Periodontitis [Unknown]
  - Mobility decreased [Unknown]
  - Tooth resorption [Unknown]
  - Tooth loss [Unknown]
  - Gastric varices [Unknown]
  - Arthralgia [Unknown]
  - Eczema [Unknown]
  - Toothache [Unknown]
  - Colon adenoma [Unknown]
  - Vestibular disorder [Unknown]
  - Balance disorder [Unknown]
  - Dry eye [Unknown]
  - Alopecia [Unknown]
